FAERS Safety Report 25226786 (Version 1)
Quarter: 2025Q2

REPORT INFORMATION
  Report Type: Spontaneous
  Country: US (occurrence: None)
  Receive Date: 20250422
  Receipt Date: 20250422
  Transmission Date: 20250717
  Serious: No
  Sender: FDA-CTU
  Company Number: None

PATIENT
  Age: 67 Year
  Sex: Male

DRUGS (13)
  1. TICE BCG [Suspect]
     Active Substance: BACILLUS CALMETTE-GUERIN SUBSTRAIN TICE LIVE ANTIGEN
  2. OMEPRAZOLE [Concomitant]
     Active Substance: OMEPRAZOLE
  3. GLIMEPIRIDE [Concomitant]
     Active Substance: GLIMEPIRIDE
  4. RYBELSUS [Concomitant]
     Active Substance: SEMAGLUTIDE
  5. VENLAFAXINE [Concomitant]
     Active Substance: VENLAFAXINE HYDROCHLORIDE
  6. TAMSULOSIN [Concomitant]
     Active Substance: TAMSULOSIN
  7. ATORVASTATIN [Concomitant]
     Active Substance: ATORVASTATIN
  8. LOSARTAN [Concomitant]
     Active Substance: LOSARTAN
  9. FINASTERIDE [Concomitant]
     Active Substance: FINASTERIDE
  10. SYMBICORT [Concomitant]
     Active Substance: BUDESONIDE\FORMOTEROL FUMARATE DIHYDRATE
  11. INCRUSE ELLIPTA [Concomitant]
     Active Substance: UMECLIDINIUM BROMIDE
  12. VENTOLIN [Concomitant]
     Active Substance: ALBUTEROL SULFATE
  13. ASPIRIN [Concomitant]
     Active Substance: ASPIRIN

REACTIONS (17)
  - Headache [None]
  - Gait disturbance [None]
  - Loss of personal independence in daily activities [None]
  - Pallor [None]
  - General physical health deterioration [None]
  - Bladder dysfunction [None]
  - Ejaculation disorder [None]
  - Visual impairment [None]
  - Renal impairment [None]
  - Erectile dysfunction [None]
  - Somnolence [None]
  - Dysarthria [None]
  - Fatigue [None]
  - Hypoacusis [None]
  - Initial insomnia [None]
  - Incorrect dose administered [None]
  - Asthenia [None]

NARRATIVE: CASE EVENT DATE: 20230809
